FAERS Safety Report 7309910-9 (Version None)
Quarter: 2011Q1

REPORT INFORMATION
  Report Type: 
  Country: None (occurrence: None)
  Receive Date: 20110224
  Receipt Date: 20110214
  Transmission Date: 20110831
  Serious: Yes (Other)
  Sender: FDA-Public Use
  Company Number: US-TEVA-234742USA

PATIENT
  Sex: Female
  Weight: 52.664 kg

DRUGS (1)
  1. PLAN B ONE-STEP [Suspect]
     Indication: POST COITAL CONTRACEPTION
     Route: 048
     Dates: start: 20100401, end: 20100401

REACTIONS (9)
  - PELVIC PAIN [None]
  - VAGINAL HAEMORRHAGE [None]
  - DRUG INEFFECTIVE [None]
  - PREMATURE RUPTURE OF MEMBRANES [None]
  - PLACENTAL DISORDER [None]
  - BREAST TENDERNESS [None]
  - AMNIOTIC FLUID VOLUME DECREASED [None]
  - PREGNANCY AFTER POST COITAL CONTRACEPTION [None]
  - INTRA-UTERINE DEATH [None]
